FAERS Safety Report 8586505-0 (Version None)
Quarter: 2012Q3

REPORT INFORMATION
  Report Type: 
  Country: None (occurrence: None)
  Receive Date: 20120810
  Receipt Date: 20120730
  Transmission Date: 20120928
  Serious: Yes (Hospitalization)
  Sender: FDA-Public Use
  Company Number: US-JNJFOC-20120801236

PATIENT
  Sex: Male
  Weight: 65.4 kg

DRUGS (43)
  1. CYCLOPHOSPHAMIDE [Suspect]
     Indication: MANTLE CELL LYMPHOMA
     Route: 065
  2. RITUXIMAB [Suspect]
     Route: 042
  3. TYLENOL [Concomitant]
     Indication: PREMEDICATION
     Route: 048
     Dates: start: 20120704
  4. LORAZEPAM [Concomitant]
     Route: 065
  5. VORICONAZOLE [Concomitant]
     Dosage: FOR ATLEAST 1 MONTH
     Route: 048
  6. DIPHENHYDRAMINE HYDROCHLORIDE [Concomitant]
     Dosage: PRIOR TO TRANSFUSION
     Route: 042
     Dates: start: 20120705
  7. RASBURICASE [Suspect]
     Indication: MANTLE CELL LYMPHOMA
     Dosage: 100 ML/HR FOR 15 MIN THEN 100 ML/HR FOR 30 MIN THEN INCREASED TO 400 ML/HR
     Route: 042
     Dates: start: 20120703
  8. ZOLPIDEM [Concomitant]
     Route: 065
  9. MEPERIDINE HCL [Concomitant]
     Route: 065
  10. CIPROFLOXACIN [Concomitant]
     Dosage: FOR 6 WEEKS
     Route: 048
  11. ACETAMINOPHEN [Concomitant]
     Route: 048
     Dates: start: 20120704
  12. LEUCOVORIN CALCIUM [Concomitant]
     Route: 065
     Dates: start: 20120706
  13. FLUCONAZOLE [Suspect]
     Indication: MANTLE CELL LYMPHOMA
     Route: 065
     Dates: start: 20120704
  14. ACETAMINOPHEN [Concomitant]
     Route: 048
     Dates: start: 20120523
  15. ACETAMINOPHEN [Concomitant]
     Dosage: PRIOR TO TRANSFUSION
     Route: 048
     Dates: start: 20120705
  16. MEROPENEM [Concomitant]
     Route: 065
  17. DOXORUBICIN HYDROCHLORIDE [Suspect]
     Indication: MANTLE CELL LYMPHOMA
     Dosage: CYCLE 1
     Route: 042
     Dates: start: 20120606, end: 20120611
  18. CYTARABINE [Suspect]
     Indication: MANTLE CELL LYMPHOMA
     Dosage: 5.64 G WITH 500 ML OF 0.9% NACL INFUSED OVER 2 HOURS AT 250 ML/HR
     Route: 042
     Dates: start: 20120706, end: 20120707
  19. RED BLOOD CELLS [Concomitant]
     Route: 042
     Dates: start: 20120704
  20. DIPHENHYDRAMINE HYDROCHLORIDE [Concomitant]
     Dosage: 25 MG IN NORMAL SALINE OF 50 ML IVPB
     Route: 042
     Dates: start: 20120704
  21. SODIUM BICARBONATE [Concomitant]
     Route: 065
     Dates: start: 20120706
  22. HYDROCORTISONE [Concomitant]
     Route: 042
     Dates: start: 20120706
  23. XANAX [Concomitant]
     Route: 048
     Dates: start: 20120706
  24. HALOPERIDOL [Concomitant]
     Route: 065
  25. OXYCODONE HCL [Concomitant]
     Route: 065
  26. VALTREX [Concomitant]
     Route: 065
  27. VICODIN [Concomitant]
     Indication: PAIN
     Route: 065
     Dates: start: 20120703
  28. PANTOPRAZOLE [Concomitant]
     Route: 065
  29. MESNA [Concomitant]
     Route: 065
  30. VINCRISTINE [Suspect]
     Indication: MANTLE CELL LYMPHOMA
     Route: 065
  31. METHOTREXATE [Suspect]
     Dosage: 1504 MF IN 250 ML OF NACL 0.9% INFUSED OVER 22 HOURS AT 11.3636ML/HR
     Route: 042
     Dates: start: 20120706
  32. NEULASTA [Suspect]
     Indication: MANTLE CELL LYMPHOMA
     Route: 058
     Dates: start: 20120710
  33. DOXORUBICIN HYDROCHLORIDE [Suspect]
     Dosage: CYCLE 2
     Route: 042
     Dates: start: 20120704
  34. VELCADE [Suspect]
     Indication: MANTLE CELL LYMPHOMA
     Route: 065
     Dates: start: 20120704
  35. METHOTREXATE [Suspect]
     Indication: MANTLE CELL LYMPHOMA
     Dosage: ON DAY 2; 376 MG WITH 250 ML OF 0.9% SODIUM CHLORIDE, INFUSE OVER 2 HOURS AT 125 ML/HR
     Route: 042
     Dates: start: 20120705, end: 20120705
  36. RITUXIMAB [Suspect]
     Indication: MANTLE CELL LYMPHOMA
     Route: 042
     Dates: start: 20120606, end: 20120611
  37. BENADRYL [Concomitant]
     Indication: PREMEDICATION
     Route: 042
     Dates: start: 20120704
  38. RED BLOOD CELLS [Concomitant]
     Route: 042
     Dates: start: 20120705, end: 20120706
  39. HYDROCORTISONE [Concomitant]
     Route: 042
     Dates: start: 20120704
  40. ONDANSETRON [Concomitant]
     Route: 065
  41. DEXAMETHASONE [Suspect]
     Indication: MANTLE CELL LYMPHOMA
     Route: 065
  42. CEFTAZIDIME [Concomitant]
     Route: 042
     Dates: start: 20120703
  43. RITUXAN [Concomitant]
     Indication: MANTLE CELL LYMPHOMA
     Dosage: 100 ML/HR FOR 15 MIN THEN 100 ML/HR FOR 30 MIN THEN INCREASED TO 400 ML/HR
     Route: 065
     Dates: start: 20120704

REACTIONS (4)
  - DEVICE RELATED INFECTION [None]
  - PSEUDOMONAS INFECTION [None]
  - THROMBOPHLEBITIS [None]
  - PULMONARY CAVITATION [None]
